FAERS Safety Report 17026552 (Version 1)
Quarter: 2019Q4

REPORT INFORMATION
  Report Type: Spontaneous
  Country: US (occurrence: US)
  Receive Date: 20191009
  Receipt Date: 20191009
  Transmission Date: 20200122
  Serious: Yes (Other)
  Sender: FDA-Public Use
  Company Number: None

PATIENT
  Age: 59 Year
  Sex: Male
  Weight: 104.33 kg

DRUGS (6)
  1. LISINOPRIL. [Concomitant]
     Active Substance: LISINOPRIL
  2. MENTHOLLM-SALICYLATE [Concomitant]
  3. LANTUS SOLOSTAR [Suspect]
     Active Substance: INSULIN GLARGINE
     Indication: DIABETES MELLITUS
     Dosage: ?          OTHER STRENGTH:100UNIT/MC 3ML PEN;QUANTITY:20 DF DOSAGE FORM;OTHER ROUTE:INJECTION?
     Dates: start: 201811, end: 20190606
  4. METFORMIN [Concomitant]
     Active Substance: METFORMIN HYDROCHLORIDE
  5. DICLOFENAC [Concomitant]
     Active Substance: DICLOFENAC
  6. NOVOLOG [Concomitant]
     Active Substance: INSULIN ASPART

REACTIONS (3)
  - Carpal tunnel syndrome [None]
  - Muscle atrophy [None]
  - Arthralgia [None]
